FAERS Safety Report 7991780-7 (Version None)
Quarter: 2011Q4

REPORT INFORMATION
  Report Type: 
  Country: None (occurrence: None)
  Receive Date: 20111219
  Receipt Date: 20111206
  Transmission Date: 20120403
  Serious: Yes (Other)
  Sender: FDA-Public Use
  Company Number: PHEH2011US010988

PATIENT
  Sex: Female

DRUGS (9)
  1. STEROIDS NOS [Interacting]
     Dosage: UNK UKN, UNK
  2. XANAX [Concomitant]
     Dosage: UNK UKN, UNK
  3. SYNTHROID [Concomitant]
     Dosage: UNK UKN, UNK
  4. AREDIA [Suspect]
     Dosage: 30 MG, QID
     Dates: start: 20110624
  5. CYTOMEL [Concomitant]
     Dosage: UNK UKN, UNK
  6. FENTANYL [Concomitant]
     Indication: PAIN
     Dosage: UNK UKN, UNK
  7. OXYCONTIN [Concomitant]
     Dosage: UNK UKN, UNK
  8. VITAMIN D [Concomitant]
  9. LIDODERM [Concomitant]
     Indication: PAIN
     Dosage: UNK UKN, UNK

REACTIONS (14)
  - ABDOMINAL DISCOMFORT [None]
  - TREMOR [None]
  - FATIGUE [None]
  - ARTHRALGIA [None]
  - INAPPROPRIATE SCHEDULE OF DRUG ADMINISTRATION [None]
  - URINE ANALYSIS ABNORMAL [None]
  - MYALGIA [None]
  - ASTHENIA [None]
  - NEUROPATHY PERIPHERAL [None]
  - PAIN [None]
  - AGITATION [None]
  - MUSCULOSKELETAL STIFFNESS [None]
  - TOXICITY TO VARIOUS AGENTS [None]
  - MUSCLE SPASMS [None]
